FAERS Safety Report 10162602 (Version 1)
Quarter: 2014Q2

REPORT INFORMATION
  Report Type: Spontaneous
  Country: JP (occurrence: JP)
  Receive Date: 20140509
  Receipt Date: 20140509
  Transmission Date: 20141212
  Serious: Yes (Hospitalization)
  Sender: FDA-Public Use
  Company Number: JP-ABBVIE-14P-087-1232659-00

PATIENT
  Age: 37 Year
  Sex: Male

DRUGS (4)
  1. VALPROATE SODIUM [Suspect]
     Indication: AGITATION
  2. VALPROATE SODIUM [Suspect]
     Indication: TENSION
  3. LEVOMEPROMAZINE [Suspect]
     Indication: AGITATION
  4. LEVOMEPROMAZINE [Suspect]
     Indication: TENSION

REACTIONS (1)
  - Neuroleptic malignant syndrome [Recovered/Resolved]
